FAERS Safety Report 4296588-4 (Version None)
Quarter: 2004Q1

REPORT INFORMATION
  Report Type: 
  Country: None (occurrence: None)
  Receive Date: 20040205
  Receipt Date: 20030401
  Transmission Date: 20041129
  Serious: Yes (Other)
  Sender: FDA-Public Use
  Company Number: WAES 0304USA00193

PATIENT

DRUGS (1)
  1. ELSPAR [Suspect]
     Indication: CARCINOMA
     Dosage: IV
     Route: 042

REACTIONS (2)
  - HYPOCALCAEMIA [None]
  - RENAL FAILURE [None]
